FAERS Safety Report 15259855 (Version 3)
Quarter: 2021Q1

REPORT INFORMATION
  Report Type: Spontaneous
  Country: US (occurrence: US)
  Receive Date: 20180809
  Receipt Date: 20210125
  Transmission Date: 20210419
  Serious: Yes (Other)
  Sender: FDA-Public Use
  Company Number: US-SA-2018SA009067

PATIENT
  Age: 56 Year
  Sex: Female
  Weight: 137.89 kg

DRUGS (14)
  1. NEULASTA [Concomitant]
     Active Substance: PEGFILGRASTIM
     Dosage: 6 MG, UNK
  2. 5?FLUOROURACIL [FLUOROURACIL] [Concomitant]
     Active Substance: FLUOROURACIL
     Indication: BREAST CANCER FEMALE
  3. TAXOTERE [Suspect]
     Active Substance: DOCETAXEL
     Indication: BREAST CANCER FEMALE
     Dosage: 170 MG, Q3W
     Route: 042
     Dates: start: 20071011, end: 20071011
  4. AROMASIN [Concomitant]
     Active Substance: EXEMESTANE
     Dosage: UNK
     Dates: start: 2004
  5. TREXALL [Concomitant]
     Active Substance: METHOTREXATE SODIUM
     Indication: BREAST CANCER FEMALE
  6. DECADRON [Concomitant]
     Active Substance: DEXAMETHASONE
  7. WELLBUTRIN [Concomitant]
     Active Substance: BUPROPION HYDROCHLORIDE
     Dosage: UNK
     Dates: start: 2004
  8. LEVOTHYROXINE. [Concomitant]
     Active Substance: LEVOTHYROXINE
     Dosage: UNK
     Dates: start: 2004
  9. ALOXI [Concomitant]
     Active Substance: PALONOSETRON HYDROCHLORIDE
     Dosage: 0.25 MG, UNK
  10. PAXIL [Concomitant]
     Active Substance: PAROXETINE HYDROCHLORIDE
     Dosage: UNK
     Dates: start: 2004
  11. TAXOTERE [Suspect]
     Active Substance: DOCETAXEL
     Dosage: 170 MG, Q3W
     Route: 042
     Dates: start: 20080123, end: 20080123
  12. CYTOXAN [Concomitant]
     Active Substance: CYCLOPHOSPHAMIDE
  13. NEOSAR [Concomitant]
     Active Substance: CYCLOPHOSPHAMIDE
     Indication: BREAST CANCER FEMALE
  14. LAMOTRIGINE. [Concomitant]
     Active Substance: LAMOTRIGINE
     Dosage: UNK
     Dates: start: 2004

REACTIONS (2)
  - Psychological trauma [Unknown]
  - Alopecia [Not Recovered/Not Resolved]

NARRATIVE: CASE EVENT DATE: 200812
